FAERS Safety Report 19586302 (Version 1)
Quarter: 2021Q3

REPORT INFORMATION
  Report Type: Spontaneous
  Country: US (occurrence: US)
  Receive Date: 20210720
  Receipt Date: 20210720
  Transmission Date: 20211014
  Serious: No
  Sender: FDA-Public Use
  Company Number: US-009507513-2107USA000319

PATIENT
  Age: 37 Year
  Sex: Female

DRUGS (7)
  1. INVANZ [Suspect]
     Active Substance: ERTAPENEM SODIUM
     Indication: STREPTOCOCCAL INFECTION
  2. NORETHINDRONE ACETATE. [Concomitant]
     Active Substance: NORETHINDRONE ACETATE
  3. MEROPENEM. [Concomitant]
     Active Substance: MEROPENEM
  4. PERCOCET [Concomitant]
     Active Substance: ACETAMINOPHEN\OXYCODONE HYDROCHLORIDE
     Indication: PULMONARY INFARCTION
  5. ETHINYL OESTRADIOL [Concomitant]
     Active Substance: ETHINYL ESTRADIOL
  6. APIXABAN [Concomitant]
     Active Substance: APIXABAN
     Indication: PULMONARY INFARCTION
  7. VANCOMYCIN [Concomitant]
     Active Substance: VANCOMYCIN

REACTIONS (1)
  - Product use in unapproved indication [Unknown]
